FAERS Safety Report 24799049 (Version 1)
Quarter: 2025Q1

REPORT INFORMATION
  Report Type: Report from Study
  Country: US (occurrence: US)
  Receive Date: 20250102
  Receipt Date: 20250102
  Transmission Date: 20250408
  Serious: Yes (Death, Other)
  Sender: ROCHE
  Company Number: US-ROCHE-10000015452

PATIENT
  Age: 43 Year
  Sex: Male
  Weight: 140 kg

DRUGS (22)
  1. AVASTIN [Suspect]
     Active Substance: BEVACIZUMAB
     Indication: Rectal cancer
     Dosage: INFUSE 505MG AS PRESCRIBED EVERY 14 DAYS. DOS : 13/FEB/2024 (625MG), 10/DEC/2024 (600MG)
     Route: 050
     Dates: start: 20231030
  2. AVASTIN [Suspect]
     Active Substance: BEVACIZUMAB
     Indication: Metastases to liver
     Route: 050
     Dates: start: 20240213
  3. AVASTIN [Suspect]
     Active Substance: BEVACIZUMAB
     Route: 050
     Dates: start: 20241210
  4. OXALIPLATIN [Concomitant]
     Active Substance: OXALIPLATIN
  5. LEUCOVORIN [Concomitant]
     Active Substance: LEUCOVORIN\LEUCOVORIN CALCIUM
  6. ADRUCIL [Concomitant]
     Active Substance: FLUOROURACIL
  7. DULOXETINE [Concomitant]
     Active Substance: DULOXETINE
  8. NALOXONE HCL [Concomitant]
     Active Substance: NALOXONE HYDROCHLORIDE
  9. OLANZAPINE [Concomitant]
     Active Substance: OLANZAPINE
  10. ALLOPURINOL [Concomitant]
     Active Substance: ALLOPURINOL
  11. BUPROPION [Concomitant]
     Active Substance: BUPROPION
  12. FENTANYL [Concomitant]
     Active Substance: FENTANYL
  13. FEXOFENADINE [Concomitant]
     Active Substance: FEXOFENADINE HYDROCHLORIDE
  14. FUROSEMIDE [Concomitant]
     Active Substance: FUROSEMIDE
  15. HYDROXYZINE PAMOATE [Concomitant]
     Active Substance: HYDROXYZINE PAMOATE
  16. IBUPROFEN [Concomitant]
     Active Substance: IBUPROFEN
  17. LUBIPROSTONE [Concomitant]
     Active Substance: LUBIPROSTONE
  18. NORTRIPTYLINE [Concomitant]
     Active Substance: NORTRIPTYLINE
  19. OMEPRAZOLE [Concomitant]
     Active Substance: OMEPRAZOLE
  20. ONDANSETRON [Concomitant]
     Active Substance: ONDANSETRON
  21. OXYCODONE [Concomitant]
     Active Substance: OXYCODONE
  22. TESTOSTERONE CYPIONATE [Concomitant]
     Active Substance: TESTOSTERONE CYPIONATE

REACTIONS (9)
  - Death [Fatal]
  - Sepsis [Unknown]
  - Neutropenia [Unknown]
  - Obesity [Unknown]
  - Hyponatraemia [Unknown]
  - Generalised oedema [Unknown]
  - Pancytopenia [Unknown]
  - Fatigue [Unknown]
  - Asthenia [Unknown]

NARRATIVE: CASE EVENT DATE: 20241223
